FAERS Safety Report 7768271-1 (Version None)
Quarter: 2011Q3

REPORT INFORMATION
  Report Type: 
  Country: None (occurrence: None)
  Receive Date: 20110922
  Receipt Date: 20101103
  Transmission Date: 20111222
  Serious: No
  Sender: FDA-Public Use
  Company Number: US-ASTRAZENECA-2010SE52395

PATIENT
  Sex: Male
  Weight: 108.9 kg

DRUGS (12)
  1. LISINOPRIL [Concomitant]
     Indication: HYPERTENSION
  2. TEMAZEPAM [Concomitant]
  3. SEROQUEL [Suspect]
     Indication: BIPOLAR I DISORDER
     Route: 048
  4. SEROQUEL [Suspect]
     Route: 048
     Dates: start: 20070101
  5. SEROQUEL [Suspect]
     Route: 048
     Dates: start: 20060101
  6. SEROQUEL [Suspect]
     Route: 048
     Dates: start: 20070101, end: 20070101
  7. PRAVASTATIN [Concomitant]
     Indication: HYPERTENSION
  8. NORMODYNE [Concomitant]
     Indication: HYPERTENSION
  9. CLONIDINE [Concomitant]
     Indication: HYPERTENSION
  10. LAMICTAL [Concomitant]
  11. PROPRANOLOL [Concomitant]
     Indication: HYPERTENSION
  12. ZOLOFT [Concomitant]

REACTIONS (7)
  - DRUG DOSE OMISSION [None]
  - AGGRESSION [None]
  - VERBAL ABUSE [None]
  - ILLUSION [None]
  - AMNESIA [None]
  - INCORRECT DOSE ADMINISTERED [None]
  - WEIGHT INCREASED [None]
